FAERS Safety Report 15234904 (Version 1)
Quarter: 2018Q3

REPORT INFORMATION
  Report Type: Spontaneous
  Country: US (occurrence: US)
  Receive Date: 20180803
  Receipt Date: 20180803
  Transmission Date: 20181010
  Serious: Yes (Other)
  Sender: FDA-Public Use
  Company Number: US-ACCORD-065014

PATIENT
  Age: 70 Year
  Sex: Female
  Weight: 97.98 kg

DRUGS (6)
  1. DOCETAXEL ACCORD [Suspect]
     Active Substance: DOCETAXEL
     Indication: BREAST CANCER
     Dosage: STRENGTH: 20 MG/ML
     Route: 042
     Dates: start: 20150730, end: 20151001
  2. OXYCODONE HYDROCHLORIDE/PARACETAMOL [Concomitant]
     Dosage: STRENGTH: 10?325 MG
  3. DEXAMETHASONE. [Concomitant]
     Active Substance: DEXAMETHASONE
     Dosage: STRENGTH: 10 MG/ML
     Route: 042
  4. PALONOSETRON. [Concomitant]
     Active Substance: PALONOSETRON HYDROCHLORIDE
     Dosage: STRENGTH: 0.25 MG/5 ML
     Route: 042
  5. CYCLOPHOSPHAMIDE/CYCLOPHOSPHAMIDE MONOHYDRATE [Concomitant]
     Dosage: STRENGTH: 20 MG/ML
     Route: 042
  6. PEGFILGRASTIM [Concomitant]
     Active Substance: PEGFILGRASTIM
     Dosage: STRENGTH: 6 MG/0.6ML
     Route: 058

REACTIONS (1)
  - Alopecia [Unknown]
